FAERS Safety Report 10514979 (Version 2)
Quarter: 2014Q4

REPORT INFORMATION
  Report Type: Report from Study
  Country: JP (occurrence: JP)
  Receive Date: 20141013
  Receipt Date: 20141013
  Transmission Date: 20150528
  Serious: Yes (Hospitalization)
  Sender: FDA-Public Use
  Company Number: PHHY2014JP126811

PATIENT
  Age: 82 Year
  Sex: Male
  Weight: 47 kg

DRUGS (4)
  1. SEEBRI [Concomitant]
     Active Substance: GLYCOPYRRONIUM
     Indication: CHRONIC OBSTRUCTIVE PULMONARY DISEASE
     Dosage: 1 DF, UNK
     Route: 055
     Dates: start: 20140604
  2. CLARITH [Concomitant]
     Active Substance: CLARITHROMYCIN
     Indication: CHRONIC OBSTRUCTIVE PULMONARY DISEASE
     Dosage: 400 MG, UNK
     Route: 048
  3. INDACATEROL [Suspect]
     Active Substance: INDACATEROL
     Indication: CHRONIC OBSTRUCTIVE PULMONARY DISEASE
     Dosage: 150 UG, UNK
     Route: 055
     Dates: start: 20140604
  4. MUCODYNE [Concomitant]
     Active Substance: CARBOCYSTEINE
     Indication: CHRONIC OBSTRUCTIVE PULMONARY DISEASE
     Dosage: 1500 MG, UNK
     Route: 048

REACTIONS (1)
  - Pneumothorax spontaneous [Recovered/Resolved]

NARRATIVE: CASE EVENT DATE: 20140901
